FAERS Safety Report 5454168-9 (Version None)
Quarter: 2007Q3

REPORT INFORMATION
  Report Type: 
  Country: None (occurrence: None)
  Receive Date: 20070917
  Receipt Date: 20070228
  Transmission Date: 20080115
  Serious: Yes (Hospitalization)
  Sender: FDA-Public Use
  Company Number: US-ASTRAZENECA-2006UW11257

PATIENT
  Sex: Male
  Weight: 92.3 kg

DRUGS (4)
  1. SEROQUEL [Suspect]
     Indication: BIPOLAR DISORDER
     Route: 048
     Dates: start: 20010101
  2. ZYPREXA [Suspect]
     Dates: start: 20010101, end: 20020101
  3. RISPERDAL [Concomitant]
     Dates: start: 20030101
  4. LITHIUM [Concomitant]
     Dates: start: 20010101, end: 20060101

REACTIONS (2)
  - DIABETES MELLITUS [None]
  - MANIA [None]
